FAERS Safety Report 9113428 (Version 1)
Quarter: 2013Q1

REPORT INFORMATION
  Report Type: Spontaneous
  Country: IT (occurrence: IT)
  Receive Date: 20130131
  Receipt Date: 20130131
  Transmission Date: 20140127
  Serious: Yes (Hospitalization, Other)
  Sender: FDA-Public Use
  Company Number: IT-PFIZER INC-2013030993

PATIENT
  Age: 45 Year
  Sex: Female

DRUGS (5)
  1. CARBOPLATIN [Suspect]
     Dosage: 625 MG/KG, CYCLIC
     Route: 042
     Dates: start: 20120726, end: 20120726
  2. PACLITAXEL [Suspect]
     Dosage: 350 MG/KG, CYCLIC
     Route: 042
     Dates: start: 20120726, end: 20120726
  3. AVASTIN [Suspect]
     Dosage: 1485 MG/KG, CYCLIC
     Route: 042
     Dates: start: 20120726, end: 20120726
  4. TRIATEC [Concomitant]
     Dosage: 2.5 MG, UNK
  5. BINOCRIT [Concomitant]
     Dosage: 30000 UI/0.75 ML

REACTIONS (11)
  - Hyperpyrexia [Unknown]
  - Nausea [Unknown]
  - Leukopenia [Unknown]
  - Azotaemia [Unknown]
  - Blood chloride decreased [Unknown]
  - Blood creatine phosphokinase increased [Unknown]
  - Haemoglobin decreased [Unknown]
  - Haematocrit decreased [Unknown]
  - Blood lactate dehydrogenase increased [Unknown]
  - Blood sodium decreased [Unknown]
  - Blood glucose increased [Unknown]
